FAERS Safety Report 20452157 (Version 1)
Quarter: 2022Q1

REPORT INFORMATION
  Report Type: Report from Study
  Country: US (occurrence: None)
  Receive Date: 20220209
  Receipt Date: 20220209
  Transmission Date: 20220423
  Serious: Yes (Hospitalization)
  Sender: FDA-Public Use
  Company Number: US-ROCHE-2497045

PATIENT
  Age: 46 Year
  Sex: Female
  Weight: 112.7 kg

DRUGS (1)
  1. ATEZOLIZUMAB [Suspect]
     Active Substance: ATEZOLIZUMAB
     Indication: Genitourinary tract neoplasm
     Dosage: 28/AUG/2018, MOST RECENT DOSE OF ATEZOLIZUMAB?06/AUG/2019: SHE STARTED COURSE 15?MOST RECENT DOSE OF
     Route: 042
     Dates: start: 20180807

REACTIONS (3)
  - Colitis [Recovered/Resolved]
  - Device related infection [Unknown]
  - Skin infection [Unknown]

NARRATIVE: CASE EVENT DATE: 20180917
